FAERS Safety Report 13064922 (Version 1)
Quarter: 2016Q4

REPORT INFORMATION
  Report Type: Spontaneous
  Country: IT (occurrence: IT)
  Receive Date: 20161227
  Receipt Date: 20161227
  Transmission Date: 20170207
  Serious: Yes (Hospitalization)
  Sender: FDA-Public Use
  Company Number: IT-SCIEGEN PHARMACEUTICALS INC-2016SCILIT00644

PATIENT
  Age: 38 Month
  Sex: Male

DRUGS (1)
  1. LAMOTRIGINE TABLETS [Suspect]
     Active Substance: LAMOTRIGINE
     Indication: PRODUCT USED FOR UNKNOWN INDICATION
     Dosage: UNK
     Route: 065

REACTIONS (18)
  - Sinus tachycardia [Recovered/Resolved]
  - Protrusion tongue [Unknown]
  - Accidental exposure to product by child [Unknown]
  - Hyperhidrosis [Unknown]
  - Ataxia [Recovered/Resolved]
  - Malaise [Unknown]
  - Increased appetite [Unknown]
  - Loss of consciousness [Unknown]
  - Postictal state [Recovered/Resolved]
  - Thirst [Unknown]
  - Dystonia [Recovered/Resolved]
  - Hyperphagia [Not Recovered/Not Resolved]
  - Generalised tonic-clonic seizure [Recovered/Resolved]
  - Toxicity to various agents [Unknown]
  - Bundle branch block right [Recovered/Resolved]
  - Agitation [Recovered/Resolved]
  - Restlessness [Recovered/Resolved]
  - Oculogyric crisis [Unknown]
